FAERS Safety Report 10673911 (Version 1)
Quarter: 2014Q4

REPORT INFORMATION
  Report Type: Spontaneous
  Country: US (occurrence: None)
  Receive Date: 20141223
  Receipt Date: 20141223
  Transmission Date: 20150529
  Serious: No
  Sender: FDA-Public Use
  Company Number: None

PATIENT
  Age: 88 Year
  Sex: Female
  Weight: 45.36 kg

DRUGS (11)
  1. CALCIUM-VD [Concomitant]
  2. PRILOSEC [Concomitant]
     Active Substance: OMEPRAZOLE MAGNESIUM
  3. VITAMIN D [Concomitant]
     Active Substance: CHOLECALCIFEROL
  4. I-CAPS [Concomitant]
  5. GRAPESEED EXTRACT [Concomitant]
  6. OMEGA 3 [Concomitant]
     Active Substance: OMEGA-3 FATTY ACIDS
  7. ORAJEL [Suspect]
     Active Substance: ALLANTOIN\BENZOCAINE\CAMPHOR (NATURAL)\DIMETHICONE\MENTHOL
     Indication: GINGIVAL DISORDER
     Dosage: BY MOUTH
     Route: 048
     Dates: start: 2013
  8. ORAJEL [Suspect]
     Active Substance: ALLANTOIN\BENZOCAINE\CAMPHOR (NATURAL)\DIMETHICONE\MENTHOL
     Indication: TOOTH DISORDER
     Dosage: BY MOUTH
     Route: 048
     Dates: start: 2013
  9. COMBIVENT [Concomitant]
     Active Substance: ALBUTEROL SULFATE\IPRATROPIUM BROMIDE
  10. MAGNESIUM [Concomitant]
     Active Substance: MAGNESIUM
  11. TYLENOL /C [Concomitant]

REACTIONS (3)
  - Dysphonia [None]
  - Aphasia [None]
  - Accidental exposure to product [None]
